FAERS Safety Report 7265618-X (Version None)
Quarter: 2011Q1

REPORT INFORMATION
  Report Type: 
  Country: None (occurrence: None)
  Receive Date: 20110131
  Receipt Date: 20110121
  Transmission Date: 20110831
  Serious: Yes (Other)
  Sender: FDA-Public Use
  Company Number: US-BAYER-2011-008168

PATIENT
  Sex: Female

DRUGS (1)
  1. MIRENA [Suspect]
     Indication: CONTRACEPTION
     Dosage: CONTINUOUSLY
     Route: 015
     Dates: start: 20100201, end: 20110119

REACTIONS (5)
  - ABDOMINAL PAIN [None]
  - DEVICE DISLOCATION [None]
  - POST PROCEDURAL HAEMORRHAGE [None]
  - PAIN [None]
  - DYSPAREUNIA [None]
